FAERS Safety Report 7163975-6 (Version None)
Quarter: 2010Q4

REPORT INFORMATION
  Report Type: 
  Country: None (occurrence: None)
  Receive Date: 20101215
  Receipt Date: 20101203
  Transmission Date: 20110411
  Serious: Yes (Hospitalization)
  Sender: FDA-Public Use
  Company Number: A0787768A

PATIENT
  Age: 49 Year
  Sex: Female

DRUGS (5)
  1. AVANDIA [Suspect]
     Indication: DIABETES MELLITUS
     Dosage: 4MG TWICE PER DAY
     Route: 048
     Dates: start: 20011203, end: 20031105
  2. INSULIN [Concomitant]
  3. DILTIAZEM [Concomitant]
  4. ZOCOR [Concomitant]
  5. LISINOPRIL [Concomitant]

REACTIONS (4)
  - AMNESIA [None]
  - BALANCE DISORDER [None]
  - BLINDNESS [None]
  - CEREBROVASCULAR ACCIDENT [None]
